FAERS Safety Report 20697618 (Version 1)
Quarter: 2022Q2

REPORT INFORMATION
  Report Type: Spontaneous
  Country: JP (occurrence: JP)
  Receive Date: 20220411
  Receipt Date: 20220411
  Transmission Date: 20220721
  Serious: Yes (Hospitalization, Other)
  Sender: FDA-Public Use
  Company Number: JP-MSD-M2022-13788

PATIENT
  Age: 58 Year
  Sex: Female

DRUGS (1)
  1. KEYTRUDA [Suspect]
     Active Substance: PEMBROLIZUMAB
     Indication: Lung adenocarcinoma stage IV
     Dosage: 200 MILLIGRAM, Q3W
     Route: 041

REACTIONS (5)
  - Liver abscess [Unknown]
  - Infective spondylitis [Unknown]
  - Cytomegalovirus viraemia [Unknown]
  - Hepatic function abnormal [Recovering/Resolving]
  - Staphylococcal infection [Unknown]
